FAERS Safety Report 8535959-4 (Version None)
Quarter: 2012Q3

REPORT INFORMATION
  Report Type: 
  Country: None (occurrence: None)
  Receive Date: 20120725
  Receipt Date: 20120723
  Transmission Date: 20120928
  Serious: Yes (Hospitalization, Other)
  Sender: FDA-Public Use
  Company Number: PHFR2012IE002414

PATIENT
  Sex: Male

DRUGS (6)
  1. CLOZARIL [Suspect]
     Indication: SCHIZOPHRENIA
     Dosage: 600 MG, DAILY
     Route: 048
     Dates: start: 19940520, end: 20120413
  2. CITALOPRAM [Concomitant]
     Dosage: 20 MG, DAILY
     Dates: start: 20110101
  3. RISPERIDONE [Concomitant]
     Dosage: 1.5 MG, DAILY
     Route: 048
     Dates: start: 20030101
  4. RISPERIDONE [Concomitant]
     Dosage: UNK UKN, UNK
  5. ZOLPIDEM TATRATE [Concomitant]
     Dosage: 10 MG, DAILY
     Route: 048
     Dates: start: 20060101
  6. GAMANIL [Concomitant]
     Dosage: 140 MG, DAILY
     Route: 048
     Dates: start: 20020101

REACTIONS (7)
  - NEUTROPENIA [None]
  - SLEEP DISORDER [None]
  - LYMPHOCYTE COUNT ABNORMAL [None]
  - WHITE BLOOD CELL COUNT DECREASED [None]
  - NEUTROPHIL COUNT DECREASED [None]
  - INFECTION [None]
  - EOSINOPHIL COUNT DECREASED [None]
